FAERS Safety Report 17722672 (Version 1)
Quarter: 2020Q2

REPORT INFORMATION
  Report Type: Spontaneous
  Country: BS (occurrence: BS)
  Receive Date: 20200429
  Receipt Date: 20200429
  Transmission Date: 20200714
  Serious: Yes (Other)
  Sender: FDA-Public Use
  Company Number: BS-RECKITT BENCKISER HEALTHCARE INT LIMITED-RB-85904-2020

PATIENT
  Sex: Male

DRUGS (1)
  1. DETTOL FIRST AID ANTISEPTIC [Suspect]
     Active Substance: CHLOROXYLENOL
     Indication: PRODUCT USED FOR UNKNOWN INDICATION
     Dosage: UNK
     Route: 048

REACTIONS (2)
  - Blindness [Unknown]
  - Intentional product misuse [Unknown]
